FAERS Safety Report 10173133 (Version 1)
Quarter: 2014Q2

REPORT INFORMATION
  Report Type: Spontaneous
  Country: US (occurrence: None)
  Receive Date: 20140416
  Receipt Date: 20140416
  Transmission Date: 20141212
  Serious: Yes (Life-Threatening)
  Sender: FDA-Public Use
  Company Number: 163-POMAL-14013955

PATIENT
  Sex: Male

DRUGS (2)
  1. POMALYST (POMALIDOMIDE) (CAPSULES) [Suspect]
     Indication: PLASMA CELL MYELOMA
     Dosage: 2 MG, 28 IN 28 D, PO
     Route: 048
     Dates: start: 20130513, end: 20130905
  2. DEXAMETHASONE (DEXAMETHASONE) [Concomitant]

REACTIONS (1)
  - Renal failure [None]
